FAERS Safety Report 6809340-X (Version None)
Quarter: 2010Q2

REPORT INFORMATION
  Report Type: 
  Country: None (occurrence: None)
  Receive Date: 20100630
  Receipt Date: 20100621
  Transmission Date: 20101027
  Serious: Yes (Hospitalization)
  Sender: FDA-Public Use
  Company Number: CA-ASTRAZENECA-2010SE29883

PATIENT
  Age: 69 Year
  Sex: Male

DRUGS (8)
  1. SEROQUEL [Suspect]
     Route: 048
  2. ZYPREXA [Suspect]
     Route: 065
  3. CLONAZEPAM [Suspect]
     Route: 048
  4. APO-CLOZAPINE [Suspect]
     Route: 048
  5. COZAAR [Concomitant]
     Route: 065
  6. LITHIUM [Concomitant]
     Route: 065
  7. PLAVIX [Concomitant]
     Route: 065
  8. PROCYCLIDINE HCL [Concomitant]
     Route: 065

REACTIONS (2)
  - FALL [None]
  - SEDATION [None]
